FAERS Safety Report 6186230-X (Version None)
Quarter: 2009Q2

REPORT INFORMATION
  Report Type: 
  Country: None (occurrence: None)
  Receive Date: 20090511
  Receipt Date: 20090430
  Transmission Date: 20091009
  Serious: Yes (Other)
  Sender: FDA-Public Use
  Company Number: PHEH2006US15238

PATIENT
  Sex: Male

DRUGS (12)
  1. AREDIA [Suspect]
     Dosage: 90 MG, QW4
     Route: 042
  2. ZOMETA [Suspect]
  3. REVLIMID [Concomitant]
  4. DEXAMETHASONE 4MG TAB [Concomitant]
  5. VELCADE [Concomitant]
  6. CORGARD [Concomitant]
     Dosage: 20 MG, QD
  7. LASIX [Concomitant]
     Dosage: 20 MG, QD
  8. K-DUR [Concomitant]
     Dosage: 20 MEQ, QD
  9. ELAVIL [Concomitant]
     Dosage: 25 MG, QD
  10. PRILOSEC [Concomitant]
     Dosage: 20 MG, QD
  11. INTERFERON [Concomitant]
     Dosage: UNK
  12. DILANTIN                                /AUS/ [Concomitant]
     Route: 048

REACTIONS (12)
  - ANAEMIA [None]
  - ANXIETY [None]
  - BLOOD GLUCOSE FLUCTUATION [None]
  - DECREASED INTEREST [None]
  - GASTROINTESTINAL HAEMORRHAGE [None]
  - GENERAL PHYSICAL HEALTH DETERIORATION [None]
  - HERPES SIMPLEX [None]
  - OEDEMA PERIPHERAL [None]
  - OSTEONECROSIS [None]
  - PAIN [None]
  - PANCYTOPENIA [None]
  - VASCULAR INSUFFICIENCY [None]
